FAERS Safety Report 5963441-7 (Version None)
Quarter: 2008Q4

REPORT INFORMATION
  Report Type: 
  Country: None (occurrence: None)
  Receive Date: 20081121
  Receipt Date: 20081121
  Transmission Date: 20090506
  Serious: Yes (Hospitalization)
  Sender: FDA-Public Use
  Company Number: None

PATIENT
  Age: 66 Year
  Sex: Female

DRUGS (8)
  1. LEXAPRO [Suspect]
     Indication: MAJOR DEPRESSION
     Dosage: LEXAPRO DAILY 20MG PO
     Route: 048
  2. XANAX [Suspect]
     Dosage: XANAX 1 MG PO TID
     Route: 048
  3. DARVOCET [Concomitant]
  4. DOXEPIN HCL [Concomitant]
  5. NORVASC [Concomitant]
  6. PREVACID [Concomitant]
  7. TRAZODONE HCL [Concomitant]
  8. TEMAZEPAM [Concomitant]

REACTIONS (7)
  - ALCOHOL USE [None]
  - BLOOD PRESSURE SYSTOLIC INCREASED [None]
  - CONFUSIONAL STATE [None]
  - ELECTROCARDIOGRAM QT PROLONGED [None]
  - MOVEMENT DISORDER [None]
  - MULTIPLE DRUG OVERDOSE [None]
  - SUICIDE ATTEMPT [None]
